FAERS Safety Report 8486050-7 (Version None)
Quarter: 2012Q3

REPORT INFORMATION
  Report Type: 
  Country: None (occurrence: None)
  Receive Date: 20120703
  Receipt Date: 20120626
  Transmission Date: 20120928
  Serious: Yes (Hospitalization, Other)
  Sender: FDA-Public Use
  Company Number: US-B.I. PHARMACEUTICALS,INC./RIDGEFIELD-2012-BP-02113BP

PATIENT
  Sex: Male

DRUGS (8)
  1. GARLIC CAPSULE [Concomitant]
     Indication: ROUTINE HEALTH MAINTENANCE
     Route: 048
  2. PRADAXA [Suspect]
     Indication: ATRIAL FIBRILLATION
     Dosage: 150 MG
     Route: 048
     Dates: start: 20110515
  3. WELCHOL [Concomitant]
     Indication: BLOOD CHOLESTEROL INCREASED
     Route: 048
  4. FISH OIL [Concomitant]
     Indication: ROUTINE HEALTH MAINTENANCE
     Dosage: 1000 MG
     Route: 048
  5. LYRICA [Concomitant]
     Indication: VIITH NERVE PARALYSIS
     Route: 048
  6. MULTI-VITAMIN [Concomitant]
     Indication: ROUTINE HEALTH MAINTENANCE
     Route: 048
  7. FISH OIL [Concomitant]
     Indication: BLOOD CHOLESTEROL ABNORMAL
  8. GARLIC CAPSULE [Concomitant]
     Indication: BLOOD CHOLESTEROL ABNORMAL

REACTIONS (7)
  - SPEECH DISORDER [None]
  - AMNESIA [None]
  - RASH [None]
  - CEREBROVASCULAR ACCIDENT [None]
  - HEMIPLEGIA [None]
  - DYSPEPSIA [None]
  - DIPLOPIA [None]
